FAERS Safety Report 10481453 (Version 1)
Quarter: 2014Q3

REPORT INFORMATION
  Report Type: Spontaneous
  Country: US (occurrence: US)
  Receive Date: 20140929
  Receipt Date: 20140929
  Transmission Date: 20150326
  Serious: No
  Sender: FDA-Public Use
  Company Number: US-BAYER-2014-144323

PATIENT
  Age: 48 Year
  Sex: Female
  Weight: 111.11 kg

DRUGS (3)
  1. NEURONTIN [Concomitant]
     Active Substance: GABAPENTIN
     Dosage: UNK
  2. NORCO [Concomitant]
     Active Substance: ACETAMINOPHEN\HYDROCODONE BITARTRATE
  3. ALEVE [Suspect]
     Active Substance: NAPROXEN SODIUM
     Indication: HEADACHE
     Dosage: UNK, DF, PRN
     Route: 048
     Dates: start: 201408, end: 20140923

REACTIONS (6)
  - Headache [Not Recovered/Not Resolved]
  - Head discomfort [Recovered/Resolved]
  - Insomnia [Unknown]
  - Vomiting [Recovered/Resolved]
  - Drug ineffective [None]
  - Drug ineffective [None]

NARRATIVE: CASE EVENT DATE: 201408
